FAERS Safety Report 7912097-2 (Version None)
Quarter: 2011Q4

REPORT INFORMATION
  Report Type: 
  Country: None (occurrence: None)
  Receive Date: 20111114
  Receipt Date: 20111107
  Transmission Date: 20120403
  Serious: Yes (Other)
  Sender: FDA-Public Use
  Company Number: GR-ROCHE-801144

PATIENT
  Sex: Male
  Weight: 70 kg

DRUGS (4)
  1. METHOTREXATE [Suspect]
     Indication: RHEUMATOID ARTHRITIS
     Dosage: DATE OF LAST DOSE PRIOR TO SAE: 03 SEPTEMBER 2011
     Route: 048
     Dates: start: 20100108, end: 20110903
  2. ACTEMRA [Suspect]
     Indication: RHEUMATOID ARTHRITIS
     Dosage: LAST DOSE PRIOR TO SAE: 26 JULY 2011. PERMANENTLY DISCONTNUED.
     Route: 042
     Dates: start: 20100108, end: 20110825
  3. PREDNISOLONE [Concomitant]
  4. CLOPIDOGREL [Concomitant]

REACTIONS (1)
  - MOTOR NEURONE DISEASE [None]
